FAERS Safety Report 5293698-X (Version None)
Quarter: 2007Q2

REPORT INFORMATION
  Report Type: 
  Country: None (occurrence: None)
  Receive Date: 20070411
  Receipt Date: 20070327
  Transmission Date: 20071010
  Serious: Yes (Death, Hospitalization)
  Sender: FDA-Public Use
  Company Number: US-SHR-US-2007-008858

PATIENT
  Age: 67 Year
  Sex: Female
  Weight: 93.424 kg

DRUGS (2)
  1. BETASERON [Suspect]
     Indication: RELAPSING-REMITTING MULTIPLE SCLEROSIS
     Route: 058
     Dates: start: 20020716, end: 20060228
  2. BETASERON [Suspect]
     Dosage: 4 MIU, EVERY 3D
     Route: 058
     Dates: start: 20060615, end: 20070226

REACTIONS (5)
  - ANAEMIA [None]
  - CARDIAC ARREST [None]
  - CHRONIC OBSTRUCTIVE PULMONARY DISEASE [None]
  - LOSS OF CONSCIOUSNESS [None]
  - MULTIPLE SCLEROSIS [None]
